FAERS Safety Report 4421208-5 (Version None)
Quarter: 2004Q3

REPORT INFORMATION
  Report Type: 
  Country: None (occurrence: None)
  Receive Date: 20040809
  Receipt Date: 20040712
  Transmission Date: 20050211
  Serious: Yes (Other)
  Sender: FDA-Public Use
  Company Number: PHBS2004BE09247

PATIENT
  Age: 55 Year
  Sex: Female

DRUGS (1)
  1. TEGRETOL-XR [Suspect]
     Indication: TRIGEMINAL NEURALGIA
     Dosage: 800 MG/DAY
     Route: 048
     Dates: start: 20040601, end: 20040801

REACTIONS (1)
  - HYPERTENSION [None]
